FAERS Safety Report 12448838 (Version 8)
Quarter: 2018Q1

REPORT INFORMATION
  Report Type: Report from Study
  Country: BR (occurrence: BR)
  Receive Date: 20160608
  Receipt Date: 20180314
  Transmission Date: 20180508
  Serious: Yes (Life-Threatening, Hospitalization)
  Sender: FDA-Public Use
  Company Number: PHHY2016BR062126

PATIENT
  Age: 77 Year
  Sex: Female
  Weight: 83 kg

DRUGS (9)
  1. ENBREL [Concomitant]
     Active Substance: ETANERCEPT
     Indication: RHEUMATIC DISORDER
     Route: 065
  2. ALDACTONE [Concomitant]
     Active Substance: SPIRONOLACTONE
     Indication: HYPERTENSION
     Dosage: 1 DF, QD
     Route: 048
     Dates: start: 2013
  3. OMEPRAZOLE. [Concomitant]
     Active Substance: OMEPRAZOLE
     Indication: GASTRITIS PROPHYLAXIS
     Dosage: 1 DF, QD
     Route: 048
     Dates: start: 2013
  4. SELOZOK [Concomitant]
     Active Substance: METOPROLOL SUCCINATE
     Indication: HYPERTENSION
     Dosage: 1 DF, QD
     Route: 048
     Dates: start: 2013
  5. DAFLON (DIOSMIN/HESPERIDIN) [Concomitant]
     Active Substance: DIOSMIN\HESPERIDIN
     Indication: VARICOSE VEIN
     Dosage: 2 DF, QD
     Route: 048
     Dates: start: 2016
  6. DEFLAZACORTE [Concomitant]
     Active Substance: DEFLAZACORT
     Indication: ARTHRITIS
     Dosage: 1 DF, QOD
     Route: 048
     Dates: start: 2014
  7. ACLASTA [Suspect]
     Active Substance: ZOLEDRONIC ACID
     Indication: OSTEOPOROSIS
     Dosage: 5 MG, Q12MO
     Route: 042
     Dates: start: 20150430, end: 20150430
  8. ACLASTA [Suspect]
     Active Substance: ZOLEDRONIC ACID
     Dosage: 5 MG, Q12MO
     Route: 042
     Dates: start: 201604
  9. ACLASTA [Suspect]
     Active Substance: ZOLEDRONIC ACID
     Dosage: 5 MG, Q12MO
     Route: 042
     Dates: start: 201704

REACTIONS (10)
  - Rash [Not Recovered/Not Resolved]
  - Erysipelas [Recovered/Resolved]
  - Hypersensitivity [Recovered/Resolved]
  - Peripheral swelling [Unknown]
  - Gait inability [Unknown]
  - Ligament sprain [Unknown]
  - Pruritus generalised [Not Recovered/Not Resolved]
  - Pyrexia [Unknown]
  - Limb injury [Recovering/Resolving]
  - Thrombophlebitis [Recovered/Resolved]

NARRATIVE: CASE EVENT DATE: 2016
